FAERS Safety Report 5684662-7 (Version None)
Quarter: 2008Q1

REPORT INFORMATION
  Report Type: 
  Country: None (occurrence: None)
  Receive Date: 20080328
  Receipt Date: 20070509
  Transmission Date: 20080703
  Serious: Yes (Other)
  Sender: FDA-Public Use
  Company Number: US-BRISTOL-MYERS SQUIBB COMPANY-13774088

PATIENT
  Sex: Male

DRUGS (2)
  1. ERBITUX [Suspect]
     Indication: NEOPLASM MALIGNANT
  2. BENADRYL [Concomitant]
     Indication: PREMEDICATION

REACTIONS (7)
  - BLOOD PRESSURE INCREASED [None]
  - GENERALISED ERYTHEMA [None]
  - HEART RATE DECREASED [None]
  - INFUSION RELATED REACTION [None]
  - RASH GENERALISED [None]
  - TREMOR [None]
  - URINARY INCONTINENCE [None]
